FAERS Safety Report 8697337 (Version 2)
Quarter: 2012Q4

REPORT INFORMATION
  Report Type: 
  Country: DE (occurrence: DE)
  Receive Date: 20120801
  Receipt Date: 20121231
  Transmission Date: 20130627
  Serious: Yes (Disabling, Congenital Anomaly)
  Sender: FDA-Public Use
  Company Number: DE-UCBSA-062692

PATIENT
  Age: 0 Year
  Sex: Male
  Weight: 2.07 kg

DRUGS (1)
  1. KEPPRA [Suspect]
     Indication: EPILEPSY
     Route: 064

REACTIONS (4)
  - Dandy-Walker syndrome [Not Recovered/Not Resolved]
  - Congenital central nervous system anomaly [Not Recovered/Not Resolved]
  - Premature baby [Unknown]
  - Foetal exposure during pregnancy [Recovered/Resolved]
